FAERS Safety Report 24029626 (Version 2)
Quarter: 2025Q1

REPORT INFORMATION
  Report Type: Report from Study
  Country: CA (occurrence: CA)
  Receive Date: 20240628
  Receipt Date: 20250113
  Transmission Date: 20250408
  Serious: Yes (Other)
  Sender: JOHNSON AND JOHNSON
  Company Number: CA-JNJFOC-20240653552

PATIENT
  Age: 29 Year
  Sex: Female

DRUGS (1)
  1. STELARA [Suspect]
     Active Substance: USTEKINUMAB
     Indication: Crohn^s disease
     Route: 058
     Dates: start: 20200505

REACTIONS (6)
  - Seizure [Unknown]
  - Surgery [Unknown]
  - Diarrhoea [Unknown]
  - Heat stroke [Unknown]
  - Abdominal pain [Unknown]
  - Rash [Unknown]
